FAERS Safety Report 4809407-1 (Version None)
Quarter: 2005Q4

REPORT INFORMATION
  Report Type: 
  Country: None (occurrence: None)
  Receive Date: 20051021
  Receipt Date: 20051011
  Transmission Date: 20060501
  Serious: Yes (Hospitalization, Other)
  Sender: FDA-Public Use
  Company Number: 2005141156

PATIENT
  Sex: Female
  Weight: 106.1417 kg

DRUGS (6)
  1. LIPITOR [Suspect]
     Indication: ILL-DEFINED DISORDER
     Dates: start: 19960101
  2. ZYRTEC [Suspect]
     Indication: MULTIPLE ALLERGIES
     Dosage: UNKNOWN (PRN)
  3. ZYRTEC [Suspect]
     Indication: SINUS DISORDER
     Dosage: UNKNOWN (PRN)
  4. ZOLOFT [Suspect]
     Indication: ILL-DEFINED DISORDER
     Dosage: 100 MG (100 MG, 1 IN 1 D)
     Dates: start: 19960101
  5. ANTIHYPERTENSIVES (ANTIHYPERTENSIVES) [Concomitant]
  6. PREDNISONE [Concomitant]

REACTIONS (2)
  - ALLERGIC SINUSITIS [None]
  - ARTHRITIS [None]
